FAERS Safety Report 9900476 (Version 1)
Quarter: 2014Q1

REPORT INFORMATION
  Report Type: Spontaneous
  Country: US (occurrence: US)
  Receive Date: 20140217
  Receipt Date: 20140217
  Transmission Date: 20141002
  Serious: Yes (Other)
  Sender: FDA-Public Use
  Company Number: US-BIOGENIDEC-2014BI015148

PATIENT
  Age: 64 Year
  Sex: Female

DRUGS (2)
  1. TYSABRI [Suspect]
     Indication: MULTIPLE SCLEROSIS
     Route: 042
     Dates: start: 20111011
  2. AVONEX [Concomitant]
     Indication: MULTIPLE SCLEROSIS
     Route: 030
     Dates: start: 20011101

REACTIONS (5)
  - Precancerous skin lesion [Recovered/Resolved]
  - Infection [Recovered/Resolved]
  - Urinary tract infection [Recovered/Resolved]
  - Postoperative wound infection [Recovered/Resolved]
  - Influenza [Recovered/Resolved]
